FAERS Safety Report 18353741 (Version 5)
Quarter: 2020Q4

REPORT INFORMATION
  Report Type: Report from Study
  Country: US (occurrence: US)
  Receive Date: 20201006
  Receipt Date: 20201120
  Transmission Date: 20210114
  Serious: Yes (Hospitalization)
  Sender: FDA-Public Use
  Company Number: US-ROCHE-2687648

PATIENT
  Age: 61 Year
  Sex: Female
  Weight: 136.98 kg

DRUGS (44)
  1. NIRAPARIB [Suspect]
     Active Substance: NIRAPARIB
     Indication: OVARIAN CANCER
     Dosage: DOSE LAST STUDY DRUG NIRAPARIB ADMINISTERED PRIOR ADVERSE EVENT AND SERIOUS ADVERSE EVENT WAS 200 MG
     Route: 048
     Dates: start: 20200914
  2. LOPERAMIDE [Concomitant]
     Active Substance: LOPERAMIDE
     Dates: start: 20200929, end: 20201002
  3. HYDROCORTISONE. [Concomitant]
     Active Substance: HYDROCORTISONE
     Indication: DRY SKIN
     Dates: start: 2018
  4. ZINC SULFATE. [Concomitant]
     Active Substance: ZINC SULFATE
     Indication: CELLULITIS
     Route: 048
     Dates: start: 20201003, end: 20201003
  5. LOSARTIN [Concomitant]
     Active Substance: LOSARTAN
     Indication: HYPERTENSION
     Dates: start: 2019, end: 20200915
  6. OMEGA 3 FISH OILS [Concomitant]
     Active Substance: OMEGA-3 FATTY ACIDS
     Dates: start: 201804
  7. MAGNESIUM [Concomitant]
     Active Substance: MAGNESIUM
     Dates: start: 202005
  8. CYCLOBENZAPRINE. [Concomitant]
     Active Substance: CYCLOBENZAPRINE
     Indication: BACK PAIN
     Dates: start: 2005
  9. HYDROCODONE/ACETAMINOPHEN [Concomitant]
     Active Substance: ACETAMINOPHEN\HYDROCODONE
     Indication: BACK PAIN
     Dates: start: 2010
  10. DICLOFENAC [Concomitant]
     Active Substance: DICLOFENAC
     Indication: ARTHRALGIA
     Route: 061
     Dates: start: 2018
  11. MEPILEX AG [Concomitant]
     Active Substance: ACTIVATED CHARCOAL\SILVER SULFATE
     Dates: start: 201805
  12. MAGNESIUM SULFATE. [Concomitant]
     Active Substance: MAGNESIUM SULFATE
     Indication: PROPHYLAXIS
     Dates: start: 20201003, end: 20201004
  13. DOXYCYCLINE HYCLATE. [Concomitant]
     Active Substance: DOXYCYCLINE HYCLATE
     Indication: INFECTION PROPHYLAXIS
     Dates: start: 20201005, end: 20201011
  14. FLUCONAZOLE. [Concomitant]
     Active Substance: FLUCONAZOLE
     Indication: CELLULITIS
     Route: 048
     Dates: start: 20201005, end: 20201008
  15. CHLORTHALIDONE. [Concomitant]
     Active Substance: CHLORTHALIDONE
     Indication: HYPERTENSION
     Dates: start: 2019
  16. LISINOPRIL. [Concomitant]
     Active Substance: LISINOPRIL
     Indication: HYPERTENSION
     Dates: start: 2018
  17. DEXAMETHASONE. [Concomitant]
     Active Substance: DEXAMETHASONE
     Indication: PAIN OF SKIN
  18. DEXAMETHASONE. [Concomitant]
     Active Substance: DEXAMETHASONE
     Indication: BACK PAIN
  19. POTASSIUM BICARBONATE/CITRIC ACID [Concomitant]
     Indication: PROPHYLAXIS
     Dates: start: 20201003, end: 20201004
  20. ACIDOPHILUS [Concomitant]
     Active Substance: LACTOBACILLUS ACIDOPHILUS
     Indication: DIARRHOEA
     Dates: start: 20200929, end: 20201004
  21. HYDROCODONE BITARTRATE. [Concomitant]
     Active Substance: HYDROCODONE BITARTRATE
     Indication: BACK PAIN
     Dates: start: 2017
  22. AMITRIPTYLINE [Concomitant]
     Active Substance: AMITRIPTYLINE
     Indication: BACK PAIN
     Dates: start: 20200929
  23. METOPROLOL. [Concomitant]
     Active Substance: METOPROLOL
     Indication: HYPERTENSION
     Dates: start: 2019
  24. BIOTIN [Concomitant]
     Active Substance: BIOTIN
     Dates: start: 20200701
  25. DIPHENOXYLATE/ATROPINE [Concomitant]
     Active Substance: ATROPINE\DIPHENOXYLATE
     Indication: DIARRHOEA
     Dates: start: 20200917, end: 20201028
  26. FLUCONAZOLE;SODIUM CHLORIDE [Concomitant]
     Active Substance: FLUCONAZOLE
     Indication: SKIN INFECTION
     Dates: start: 20201001, end: 20201003
  27. MORPHINE SULFATE. [Concomitant]
     Active Substance: MORPHINE SULFATE
     Indication: ABDOMINAL PAIN
     Dates: start: 20200929, end: 20201001
  28. ZOLPIDEM TARTRATE. [Concomitant]
     Active Substance: ZOLPIDEM TARTRATE
     Indication: INSOMNIA
     Dates: start: 20200928, end: 20201003
  29. LEVOTHYROXINE. [Concomitant]
     Active Substance: LEVOTHYROXINE
     Indication: HYPOTHYROIDISM
     Dates: start: 2011
  30. COBIMETINIB. [Suspect]
     Active Substance: COBIMETINIB
     Indication: OVARIAN CANCER
     Dosage: DOSE LAST STUDY DRUG COBIMETINIB ADMINISTERED PRIOR ADVERSE EVENT AND SERIOUS ADVERSE EVENT WAS 60 M
     Route: 048
     Dates: start: 20200914
  31. ATEZOLIZUMAB. [Suspect]
     Active Substance: ATEZOLIZUMAB
     Indication: OVARIAN CANCER
     Dosage: DOSE LAST STUDY DRUG ATEZOLIZUMAB ADMINISTERED PRIOR ADVERSE EVENT AND SERIOUS ADVERSE EVENT WAS 840
     Route: 042
     Dates: start: 20200914
  32. GABAPENTIN. [Concomitant]
     Active Substance: GABAPENTIN
     Indication: NEUROPATHY PERIPHERAL
     Dates: start: 201804
  33. DEXAMETHASONE. [Concomitant]
     Active Substance: DEXAMETHASONE
     Indication: ABDOMINAL PAIN
  34. ACETAMINOPHEN. [Concomitant]
     Active Substance: ACETAMINOPHEN
     Indication: ABDOMINAL PAIN
     Dates: start: 20200930, end: 20200930
  35. SODIUM CHLORIDE. [Concomitant]
     Active Substance: SODIUM CHLORIDE
     Indication: PROPHYLAXIS AGAINST DEHYDRATION
     Dates: start: 20200929, end: 20201004
  36. NYSTATIN. [Concomitant]
     Active Substance: NYSTATIN
     Indication: CELLULITIS
     Dosage: 1 OTHER
     Route: 061
     Dates: start: 20200929
  37. POTASSIUM [Concomitant]
     Active Substance: POTASSIUM
     Dates: start: 2010
  38. TURMERIC [Concomitant]
     Active Substance: HERBALS\TURMERIC
     Dates: start: 201804
  39. PIPERACILLIN AND TAZOBACTAM [Concomitant]
     Active Substance: PIPERACILLIN SODIUM\TAZOBACTAM SODIUM
     Indication: CELLULITIS
     Route: 042
     Dates: start: 20200929, end: 20201004
  40. DEXAMETHASONE. [Concomitant]
     Active Substance: DEXAMETHASONE
     Indication: PROPHYLAXIS
     Dates: start: 20201005, end: 20201019
  41. GEMFIBROZIL. [Concomitant]
     Active Substance: GEMFIBROZIL
     Indication: HYPERCHOLESTEROLAEMIA
     Dates: start: 20200801
  42. LOPERAMIDE [Concomitant]
     Active Substance: LOPERAMIDE
     Indication: DIARRHOEA
     Dates: start: 20200915, end: 20200916
  43. DEXAMETHASONE. [Concomitant]
     Active Substance: DEXAMETHASONE
     Indication: STOMATITIS
     Route: 048
     Dates: start: 20200928, end: 20200928
  44. ASPIRIN. [Concomitant]
     Active Substance: ASPIRIN
     Indication: CARDIOVASCULAR EVENT PROPHYLAXIS
     Dates: start: 20200929, end: 20201003

REACTIONS (1)
  - Encephalopathy [Recovered/Resolved]

NARRATIVE: CASE EVENT DATE: 20200928
